FAERS Safety Report 5182340-4 (Version None)
Quarter: 2006Q4

REPORT INFORMATION
  Report Type: 
  Country: None (occurrence: None)
  Receive Date: 20061220
  Receipt Date: 20060728
  Transmission Date: 20070319
  Serious: No
  Sender: FDA-Public Use
  Company Number: US-GLAXOSMITHKLINE-A0613919A

PATIENT
  Age: 49 Year
  Sex: Female

DRUGS (4)
  1. COMMIT [Suspect]
  2. NICORETTE [Suspect]
  3. NICODERM CQ [Suspect]
  4. NICORETTE [Suspect]

REACTIONS (9)
  - ANXIETY [None]
  - APPLICATION SITE PRURITUS [None]
  - APPLICATION SITE RASH [None]
  - DEPRESSED MOOD [None]
  - DIZZINESS [None]
  - EUPHORIC MOOD [None]
  - FLATULENCE [None]
  - HYPOAESTHESIA ORAL [None]
  - INTENTIONAL DRUG MISUSE [None]
